FAERS Safety Report 15343190 (Version 1)
Quarter: 2018Q3

REPORT INFORMATION
  Report Type: Spontaneous
  Country: FR (occurrence: FR)
  Receive Date: 20180903
  Receipt Date: 20180903
  Transmission Date: 20181010
  Serious: Yes (Life-Threatening, Other)
  Sender: FDA-Public Use
  Company Number: FR-AUROBINDO-AUR-APL-2018-043842

PATIENT
  Age: 74 Year
  Sex: Female

DRUGS (7)
  1. RITUXIMAB. [Suspect]
     Active Substance: RITUXIMAB
     Indication: ACQUIRED HAEMOPHILIA
     Dosage: 375 MG/KG/M2, QW
     Route: 041
  2. FEIBA [Concomitant]
     Active Substance: ANTI-INHIBITOR COAGULANT COMPLEX
     Dosage: 75 INTERNATIONAL UNIT/KILOGRAM, DAILY (75 IU/KG, QD)
     Route: 065
  3. FEIBA [Concomitant]
     Active Substance: ANTI-INHIBITOR COAGULANT COMPLEX
     Dosage: 75 INTERNATIONAL UNIT/KILOGRAM, EVERY OTHER DAY (75 IU/KG, Q48H)
     Route: 065
  4. PREDNISONE. [Suspect]
     Active Substance: PREDNISONE
     Indication: ACQUIRED HAEMOPHILIA
     Dosage: 1 MILLIGRAM/KILOGRAM, DAILY (1 MG/KG, QD)
     Route: 065
  5. FEIBA [Concomitant]
     Active Substance: ANTI-INHIBITOR COAGULANT COMPLEX
     Indication: ACQUIRED HAEMOPHILIA
     Dosage: 150 INTERNATIONAL UNIT/KILOGRAM, DAILY (75 IU/KG, BID)
     Route: 065
  6. FEIBA [Concomitant]
     Active Substance: ANTI-INHIBITOR COAGULANT COMPLEX
     Dosage: 75 INTERNATIONAL UNIT/KILOGRAM, DAILY (75 IU/KG, QD)
     Route: 065
  7. AZACITIDINE. [Suspect]
     Active Substance: AZACITIDINE
     Indication: CHRONIC MYELOMONOCYTIC LEUKAEMIA
     Dosage: 75 MILLIGRAM/SQ. METER
     Route: 042

REACTIONS (4)
  - Carotid artery thrombosis [Unknown]
  - Necrotising fasciitis [Recovering/Resolving]
  - Abnormal behaviour [Unknown]
  - Ischaemic stroke [Unknown]
